FAERS Safety Report 12634250 (Version 1)
Quarter: 2016Q3

REPORT INFORMATION
  Report Type: Report from Study
  Country: TR (occurrence: TR)
  Receive Date: 20160809
  Receipt Date: 20160809
  Transmission Date: 20161109
  Serious: Yes (Other)
  Sender: FDA-Public Use
  Company Number: TR-EMD SERONO-8099553

PATIENT
  Age: 28 Year
  Sex: Female
  Weight: 71 kg

DRUGS (2)
  1. REBIF [Suspect]
     Active Substance: INTERFERON BETA-1A
     Indication: MULTIPLE SCLEROSIS
     Dates: start: 201304
  2. DUXETIN [Concomitant]
     Indication: DEPRESSION

REACTIONS (1)
  - Goitre [Not Recovered/Not Resolved]

NARRATIVE: CASE EVENT DATE: 201606
